FAERS Safety Report 4620087-0 (Version None)
Quarter: 2005Q1

REPORT INFORMATION
  Report Type: 
  Country: None (occurrence: None)
  Receive Date: 20050324
  Receipt Date: 20050311
  Transmission Date: 20050727
  Serious: Yes (Life-Threatening, Hospitalization)
  Sender: FDA-Public Use
  Company Number: 2005033070

PATIENT
  Age: 58 Year
  Sex: Male
  Weight: 53.8 kg

DRUGS (5)
  1. HALCION [Suspect]
     Indication: ILL-DEFINED DISORDER
     Dosage: SEE IMAGE
     Route: 048
  2. ALL OTHER NON-THERAPEUTIC PRODUCTS [Concomitant]
  3. NISOLDIPINE                  (NISOLDIPINE) [Concomitant]
  4. AMLODIPINE BESYLATE [Concomitant]
  5. DICLOFENAC SODIUM [Concomitant]

REACTIONS (17)
  - ALANINE AMINOTRANSFERASE INCREASED [None]
  - ASPARTATE AMINOTRANSFERASE INCREASED [None]
  - BLOOD CREATINE PHOSPHOKINASE INCREASED [None]
  - BLOOD LACTATE DEHYDROGENASE INCREASED [None]
  - C-REACTIVE PROTEIN INCREASED [None]
  - DRUG TOXICITY [None]
  - HAEMODIALYSIS [None]
  - HEPATIC FUNCTION ABNORMAL [None]
  - INFLAMMATION [None]
  - INTENTIONAL MISUSE [None]
  - MULTI-ORGAN DISORDER [None]
  - PO2 DECREASED [None]
  - PYREXIA [None]
  - RENAL IMPAIRMENT [None]
  - RESPIRATORY FAILURE [None]
  - SUICIDE ATTEMPT [None]
  - WHITE BLOOD CELL COUNT INCREASED [None]
